FAERS Safety Report 8048469-8 (Version None)
Quarter: 2011Q4

REPORT INFORMATION
  Report Type: 
  Country: None (occurrence: None)
  Receive Date: 20111209
  Receipt Date: 20111019
  Transmission Date: 20120403
  Serious: No
  Sender: FDA-Public Use
  Company Number: 2011SP049913

PATIENT
  Age: 58 Year
  Sex: Female

DRUGS (3)
  1. CALCIUM [Concomitant]
  2. LEXAPRO [Concomitant]
  3. VICTRELIS [Suspect]
     Indication: PRODUCT USED FOR UNKNOWN INDICATION
     Dosage: PO
     Route: 048
     Dates: start: 20110809

REACTIONS (7)
  - DIZZINESS [None]
  - DECREASED APPETITE [None]
  - NAUSEA [None]
  - HEADACHE [None]
  - DIARRHOEA [None]
  - ANAEMIA [None]
  - DYSGEUSIA [None]
